FAERS Safety Report 17013532 (Version 1)
Quarter: 2019Q4

REPORT INFORMATION
  Report Type: Spontaneous
  Country: US (occurrence: US)
  Receive Date: 20191002
  Receipt Date: 20191002
  Transmission Date: 20200122
  Serious: No
  Sender: FDA-Public Use
  Company Number: None

PATIENT
  Age: 86 Year
  Sex: Female
  Weight: 66.68 kg

DRUGS (8)
  1. SOTALOL 80MG [Suspect]
     Active Substance: SOTALOL
     Indication: ATRIAL FIBRILLATION
     Dates: start: 201907
  2. VITAMIN D3 [Concomitant]
     Active Substance: CHOLECALCIFEROL
  3. BIOTIN [Concomitant]
     Active Substance: BIOTIN
  4. CALCIUM [Concomitant]
     Active Substance: CALCIUM
  5. VITAMIN C [Concomitant]
     Active Substance: ASCORBIC ACID
  6. XARELTO [Suspect]
     Active Substance: RIVAROXABAN
     Dates: start: 201510
  7. DILTIAZEM. [Concomitant]
     Active Substance: DILTIAZEM
  8. ZINC. [Concomitant]
     Active Substance: ZINC

REACTIONS (6)
  - Pain in extremity [None]
  - Arthralgia [None]
  - Alopecia [None]
  - Limb discomfort [None]
  - Flank pain [None]
  - Insomnia [None]

NARRATIVE: CASE EVENT DATE: 20180930
